FAERS Safety Report 25885716 (Version 1)
Quarter: 2025Q4

REPORT INFORMATION
  Report Type: Spontaneous
  Country: EU (occurrence: EU)
  Receive Date: 20251006
  Receipt Date: 20251006
  Transmission Date: 20260118
  Serious: Yes (Hospitalization, Other)
  Sender: PFIZER
  Company Number: EU-SANDOZ-SDZ2025DE052287

PATIENT
  Age: 77 Year

DRUGS (11)
  1. PANTOPRAZOLE [Suspect]
     Active Substance: PANTOPRAZOLE
     Dosage: UNK
  2. URAPIDIL [Suspect]
     Active Substance: URAPIDIL
     Indication: Hypertension
     Dosage: UNK
     Dates: start: 2024
  3. AMLODIPINE [Suspect]
     Active Substance: AMLODIPINE BESYLATE
     Indication: Hypertension
     Dosage: UNK
  4. RAMIPRIL [Suspect]
     Active Substance: RAMIPRIL
     Dosage: UNK
  5. RAMIPRIL [Suspect]
     Active Substance: RAMIPRIL
     Dosage: 5 MG, 1X/DAY
  6. LEVOTHYROXINE [Suspect]
     Active Substance: LEVOTHYROXINE
     Indication: Goitre
     Dosage: UNK
  7. LEVOTHYROXINE [Suspect]
     Active Substance: LEVOTHYROXINE
     Dosage: UNK
     Dates: start: 20250307
  8. LISINOPRIL [Suspect]
     Active Substance: LISINOPRIL
     Indication: Hypertension
     Dosage: UNK
  9. VALSARTAN [Suspect]
     Active Substance: VALSARTAN
     Indication: Hypertension
     Dosage: UNK
  10. PIRETANIDE\RAMIPRIL [Suspect]
     Active Substance: PIRETANIDE\RAMIPRIL
     Indication: Hypertension
     Dosage: 80 MG, 1X/DAY
  11. NIFEDIPINE [Suspect]
     Active Substance: NIFEDIPINE
     Indication: Hypertension
     Dosage: UNK

REACTIONS (17)
  - Cerebral haemorrhage [Unknown]
  - Osteorrhagia [Unknown]
  - Loss of consciousness [Unknown]
  - Head injury [Unknown]
  - Thyroid operation [Unknown]
  - Dementia [Unknown]
  - Bowel movement irregularity [Unknown]
  - Influenza [Unknown]
  - Back pain [Unknown]
  - Balance disorder [Not Recovered/Not Resolved]
  - Chest pain [Unknown]
  - Memory impairment [Unknown]
  - Tremor [Unknown]
  - Tinnitus [Unknown]
  - Flatulence [Unknown]
  - Hypotension [Unknown]
  - Headache [Unknown]
